FAERS Safety Report 6734249-X (Version None)
Quarter: 2010Q2

REPORT INFORMATION
  Report Type: 
  Country: None (occurrence: None)
  Receive Date: 20100520
  Receipt Date: 20100513
  Transmission Date: 20101027
  Serious: Yes (Hospitalization)
  Sender: FDA-Public Use
  Company Number: PHHO2010CA05996

PATIENT
  Sex: Male
  Weight: 61 kg

DRUGS (11)
  1. TASIGNA [Suspect]
     Indication: CHRONIC MYELOID LEUKAEMIA
     Dosage: 400 MG, BID
     Route: 048
     Dates: start: 20091117, end: 20100418
  2. METFORMIN HYDROCHLORIDE [Concomitant]
  3. OXAZEPAM [Concomitant]
  4. RESTORIL [Concomitant]
  5. DIAMICRON [Concomitant]
  6. METAMUCIL-2 [Concomitant]
  7. HEMCORT HC [Concomitant]
  8. AVEENO ANTI-ITCH [Concomitant]
  9. LIPITOR [Concomitant]
  10. IBUPROFEN [Concomitant]
  11. SENOKOT [Concomitant]

REACTIONS (4)
  - ANGINA PECTORIS [None]
  - ARTERIAL STENOSIS [None]
  - ARTERIAL STENT INSERTION [None]
  - MYOCARDIAL INFARCTION [None]
